FAERS Safety Report 6857221-8 (Version None)
Quarter: 2010Q3

REPORT INFORMATION
  Report Type: 
  Country: None (occurrence: None)
  Receive Date: 20100719
  Receipt Date: 20100708
  Transmission Date: 20110219
  Serious: Yes (Other)
  Sender: FDA-Public Use
  Company Number: US-JNJFOC-20100702876

PATIENT
  Age: 37 Year
  Sex: Female
  Weight: 79.38 kg

DRUGS (4)
  1. TOPAMAX [Suspect]
     Indication: BIPOLAR DISORDER
     Route: 048
  2. CELEXA [Concomitant]
     Indication: BIPOLAR DISORDER
     Route: 048
  3. AMOXICILLIN [Concomitant]
     Indication: TOOTH ABSCESS
     Route: 048
  4. DARVOCET [Concomitant]
     Indication: TOOTH ABSCESS
     Route: 048

REACTIONS (17)
  - CONFUSIONAL STATE [None]
  - DIARRHOEA [None]
  - DYSGEUSIA [None]
  - HEADACHE [None]
  - HYPERHIDROSIS [None]
  - HYPOAESTHESIA [None]
  - MEMORY IMPAIRMENT [None]
  - NAUSEA [None]
  - PARAESTHESIA [None]
  - PRURITUS [None]
  - RASH [None]
  - SINUS HEADACHE [None]
  - SKIN BURNING SENSATION [None]
  - TOOTH ABSCESS [None]
  - TOOTHACHE [None]
  - TREMOR [None]
  - VISION BLURRED [None]
